FAERS Safety Report 4749297-9 (Version None)
Quarter: 2005Q3

REPORT INFORMATION
  Report Type: 
  Country: None (occurrence: None)
  Receive Date: 20050812
  Receipt Date: 20050524
  Transmission Date: 20060218
  Serious: Yes (Hospitalization)
  Sender: FDA-Public Use
  Company Number: 405791

PATIENT
  Sex: Male

DRUGS (3)
  1. PEGASYS [Suspect]
     Dosage: OTHER
     Route: 050
  2. COPEGUS [Suspect]
     Dosage: ORAL
     Route: 048
  3. ANTIBIOTIC NOS (ANTIBIOTIC NOS) [Concomitant]

REACTIONS (2)
  - HAEMOGLOBIN DECREASED [None]
  - PYREXIA [None]
